FAERS Safety Report 5975567-2 (Version None)
Quarter: 2008Q4

REPORT INFORMATION
  Report Type: 
  Country: None (occurrence: None)
  Receive Date: 20081202
  Receipt Date: 20081127
  Transmission Date: 20090506
  Serious: Yes (Hospitalization)
  Sender: FDA-Public Use
  Company Number: MX-JNJFOC-20081200093

PATIENT
  Age: 64 Year
  Sex: Male

DRUGS (2)
  1. ELEQUINE [Suspect]
     Indication: DENTAL OPERATION
     Route: 048
  2. ZALDIAR [Concomitant]
     Indication: DENTAL OPERATION
     Route: 048

REACTIONS (4)
  - BRADYCARDIA [None]
  - HYPERHIDROSIS [None]
  - HYPOTENSION [None]
  - VENTRICULAR EXTRASYSTOLES [None]
